FAERS Safety Report 4514347-1 (Version None)
Quarter: 2004Q4

REPORT INFORMATION
  Report Type: 
  Country: None (occurrence: None)
  Receive Date: 20040928
  Receipt Date: 20040624
  Transmission Date: 20050328
  Serious: No
  Sender: FDA-Public Use
  Company Number: 04P-163-0266328-00

PATIENT
  Age: 77 Year
  Sex: Female
  Weight: 84.369 kg

DRUGS (4)
  1. HUMIRA [Suspect]
     Indication: RHEUMATOID ARTHRITIS
     Dosage: 40 MG, SUBCUTANEOUS
     Route: 058
     Dates: start: 20040401
  2. GABAPENTIN [Concomitant]
  3. LEFLUNOMIDE [Concomitant]
  4. ROFECOXIB [Concomitant]

REACTIONS (1)
  - BLOOD GLUCOSE INCREASED [None]
